FAERS Safety Report 9537926 (Version 1)
Quarter: 2013Q3

REPORT INFORMATION
  Report Type: Spontaneous
  Country: GB (occurrence: GB)
  Receive Date: 20130919
  Receipt Date: 20130919
  Transmission Date: 20140515
  Serious: Yes (Hospitalization, Other)
  Sender: FDA-Public Use
  Company Number: PHHY2013GB100799

PATIENT
  Age: 68 Year
  Sex: Male

DRUGS (10)
  1. INDAPAMIDE [Suspect]
  2. OMEPRAZOLE [Interacting]
  3. SALBUTAMOL [Concomitant]
  4. SERETIDE [Concomitant]
  5. ROSUVASTATIN [Concomitant]
  6. AMLODIPINE [Concomitant]
  7. PIOGLITAZONE [Concomitant]
  8. LISINOPRIL [Concomitant]
  9. METFORMIN [Concomitant]
  10. GLICLAZIDE [Concomitant]

REACTIONS (10)
  - Hypocalcaemia [Recovered/Resolved]
  - Hypomagnesaemia [Recovered/Resolved]
  - Paraesthesia [Recovered/Resolved]
  - Muscle spasms [Recovered/Resolved]
  - Muscle twitching [Recovered/Resolved]
  - Muscular weakness [Recovered/Resolved]
  - Chvostek^s sign [Recovered/Resolved]
  - Tremor [Recovered/Resolved]
  - Nervousness [Recovered/Resolved]
  - Drug interaction [Unknown]
